FAERS Safety Report 7376658-4 (Version None)
Quarter: 2011Q1

REPORT INFORMATION
  Report Type: 
  Country: None (occurrence: None)
  Receive Date: 20110325
  Receipt Date: 20110315
  Transmission Date: 20110831
  Serious: Yes (Hospitalization)
  Sender: FDA-Public Use
  Company Number: FR-TEVA-272727ISR

PATIENT
  Sex: Male
  Weight: 73 kg

DRUGS (11)
  1. LERCANIDIPINE HYDROCHLORIDE [Concomitant]
     Indication: HYPERTENSION
     Route: 048
     Dates: start: 20100519
  2. SODIUM POLYSTYRENE SULFONATE [Concomitant]
     Indication: RENAL FAILURE
     Route: 048
     Dates: start: 20100715, end: 20110106
  3. ACETYLSALICYLATE LYSINE [Concomitant]
     Indication: THROMBOSIS PROPHYLAXIS
     Route: 048
     Dates: start: 20100922
  4. DARBEPOETIN ALFA [Concomitant]
     Route: 058
     Dates: start: 20101006
  5. PERINDOPRIL [Concomitant]
     Indication: CARDIAC FAILURE
     Route: 048
     Dates: start: 20100518
  6. DEXAMETHASONE [Suspect]
     Route: 048
     Dates: start: 20100618
  7. DEXAMETHASONE [Suspect]
     Indication: MULTIPLE MYELOMA
     Route: 048
     Dates: start: 20100527, end: 20100531
  8. LENALIDOMIDE [Suspect]
     Indication: MULTIPLE MYELOMA
     Route: 048
     Dates: start: 20100618
  9. DARBEPOETIN ALFA [Concomitant]
     Indication: ANAEMIA PROPHYLAXIS
     Route: 058
     Dates: start: 20100922, end: 20101005
  10. BISOPROLOL FUMARATE [Concomitant]
     Indication: CARDIAC FAILURE
     Route: 048
     Dates: start: 20100609
  11. ESOMEPRAZOLE MAGNESIUM [Concomitant]
     Indication: PROPHYLAXIS
     Route: 048
     Dates: start: 20100528

REACTIONS (2)
  - PNEUMONIA [None]
  - RENAL FAILURE ACUTE [None]
